FAERS Safety Report 9204482 (Version 1)
Quarter: 2013Q1

REPORT INFORMATION
  Report Type: Spontaneous
  Country: US (occurrence: None)
  Receive Date: 20120709
  Receipt Date: 20120709
  Transmission Date: 20140127
  Serious: No
  Sender: FDA-Public Use
  Company Number: 2012HGS-003438

PATIENT
  Sex: Female
  Weight: 65.77 kg

DRUGS (10)
  1. BENLYSTA [Suspect]
     Indication: SYSTEMIC LUPUS ERYTHEMATOSUS
     Dosage: 1 IN 28 D
     Route: 041
     Dates: start: 20111114
  2. ASPRIN (ACETYLSALICYLIC ACID) [Concomitant]
  3. LOPRESSOR (METOPROLOL) [Concomitant]
  4. PRILOSEC (OMEPRAZOLE) (OMEPRAZOLE) [Concomitant]
  5. TRAMADOL (TRAMADOL) (TRAMADOL) [Concomitant]
  6. TRAZODONE (TRAZODONE) (TRAZODONE) [Concomitant]
  7. EFFEXOR XR (VENLAFAXINE HYDROCLORIDE) (VENLAFAXINE HYDROCHLORIDE) [Concomitant]
  8. CRESTOR (ROSUVASTATIN CALCIUM) (ROSUVASTATIN CALCIUM) [Concomitant]
  9. ZOMIG (ZOLMITRIPTAN) (ZOLTRIPTAN) [Concomitant]
  10. PLAQUENIL (HYDROXYCHLOROQUINE PHOSPHATE) (HYDROCHLOROQUINE PHOSPHATE) [Concomitant]

REACTIONS (4)
  - Weight decreased [None]
  - Migraine [None]
  - Anxiety [None]
  - Insomnia [None]
